FAERS Safety Report 7271520-X (Version None)
Quarter: 2011Q1

REPORT INFORMATION
  Report Type: 
  Country: None (occurrence: None)
  Receive Date: 20110128
  Receipt Date: 20110128
  Transmission Date: 20110831
  Serious: Yes (Other)
  Sender: FDA-Public Use
  Company Number: None

PATIENT
  Age: 59 Year
  Sex: Male
  Weight: 78.0187 kg

DRUGS (1)
  1. BUFFERIN [Suspect]
     Indication: PROPHYLAXIS
     Dosage: 162 MG ONCE A DAY PO
     Route: 048
     Dates: start: 20101201, end: 20110122

REACTIONS (2)
  - ABDOMINAL DISCOMFORT [None]
  - PRODUCT SUBSTITUTION ISSUE [None]
